FAERS Safety Report 5463113-1 (Version None)
Quarter: 2007Q3

REPORT INFORMATION
  Report Type: 
  Country: None (occurrence: None)
  Receive Date: 20070918
  Receipt Date: 20070918
  Transmission Date: 20080115
  Serious: Yes (Other)
  Sender: FDA-Public Use
  Company Number: None

PATIENT
  Age: 68 Year
  Sex: Male
  Weight: 71.2147 kg

DRUGS (1)
  1. PRAMIPEXOLE DIHYDROCHLORIDE [Suspect]
     Indication: PARKINSON'S DISEASE
     Dosage: 1.5MG TID PO
     Route: 048
     Dates: start: 20040602, end: 20070827

REACTIONS (2)
  - IMPAIRED DRIVING ABILITY [None]
  - SLEEP ATTACKS [None]
